FAERS Safety Report 17988855 (Version 2)
Quarter: 2020Q4

REPORT INFORMATION
  Report Type: Spontaneous
  Country: US (occurrence: US)
  Receive Date: 20200707
  Receipt Date: 20201202
  Transmission Date: 20210113
  Serious: Yes (Other)
  Sender: FDA-Public Use
  Company Number: US-PFIZER INC-2020259492

PATIENT
  Age: 55 Year
  Sex: Female

DRUGS (1)
  1. EUCRISA [Suspect]
     Active Substance: CRISABOROLE
     Dosage: UNK (PLEASE INCLUDE LOCATION ON THE BODY TRUNK EXT)
     Route: 061

REACTIONS (2)
  - Scoliosis [Unknown]
  - Rheumatoid arthritis [Unknown]
